FAERS Safety Report 10177012 (Version 2)
Quarter: 2014Q3

REPORT INFORMATION
  Report Type: Spontaneous
  Country: US (occurrence: None)
  Receive Date: 20140514
  Receipt Date: 20140710
  Transmission Date: 20150326
  Serious: Yes (Hospitalization)
  Sender: FDA-Public Use
  Company Number: 2014-US-005699

PATIENT
  Age: 36 Year
  Sex: Female
  Weight: 61.7 kg

DRUGS (1)
  1. XYREM [Suspect]
     Active Substance: SODIUM OXYBATE
     Indication: NARCOLEPSY
     Route: 048
     Dates: start: 201212, end: 2012

REACTIONS (2)
  - Cyst rupture [None]
  - Hysterectomy [None]

NARRATIVE: CASE EVENT DATE: 201404
